FAERS Safety Report 9596541 (Version 1)
Quarter: 2013Q4

REPORT INFORMATION
  Report Type: Spontaneous
  Country: US (occurrence: US)
  Receive Date: 20131004
  Receipt Date: 20131004
  Transmission Date: 20140711
  Serious: Yes (Hospitalization)
  Sender: FDA-Public Use
  Company Number: US-BRISTOL-MYERS SQUIBB COMPANY-19473776

PATIENT
  Age: 6 Decade
  Sex: Male

DRUGS (1)
  1. BYDUREON [Suspect]
     Dosage: NO OF DOSES:2
     Route: 058

REACTIONS (1)
  - Pancreatitis [Unknown]
